FAERS Safety Report 6221170-9 (Version None)
Quarter: 2009Q2

REPORT INFORMATION
  Report Type: 
  Country: None (occurrence: None)
  Receive Date: 20090610
  Receipt Date: 20090529
  Transmission Date: 20091009
  Serious: Yes (Hospitalization)
  Sender: FDA-Public Use
  Company Number: JP-SANOFI-SYNTHELABO-A01200905452

PATIENT
  Sex: Male
  Weight: 85 kg

DRUGS (7)
  1. MEPTIN AIR [Concomitant]
     Indication: DRUG USE FOR UNKNOWN INDICATION
     Dosage: UNK
     Route: 055
  2. PRAVAMATE [Concomitant]
     Indication: DRUG USE FOR UNKNOWN INDICATION
     Dosage: UNK
     Route: 065
  3. THEO SLOW [Concomitant]
     Indication: DRUG USE FOR UNKNOWN INDICATION
     Dosage: UNK
     Route: 065
  4. KIPRES [Concomitant]
     Indication: DRUG USE FOR UNKNOWN INDICATION
     Dosage: UNK
     Route: 065
  5. MYSLEE [Concomitant]
     Indication: INSOMNIA
     Route: 048
     Dates: start: 20090227, end: 20090409
  6. MYSLEE [Suspect]
     Indication: MULTIPLE DRUG OVERDOSE
     Route: 048
     Dates: start: 20090401, end: 20090513
  7. ALCOHOL [Suspect]
     Indication: DRUG USE FOR UNKNOWN INDICATION
     Dosage: 2 BOTTLES OF BEER DAILY
     Route: 048

REACTIONS (4)
  - DISINHIBITION [None]
  - MANIA [None]
  - OVERDOSE [None]
  - PHYSICAL ASSAULT [None]
